FAERS Safety Report 10056513 (Version 2)
Quarter: 2014Q2

REPORT INFORMATION
  Report Type: Spontaneous
  Country: PL (occurrence: None)
  Receive Date: 20140401
  Receipt Date: 20140416
  Transmission Date: 20141212
  Serious: Yes (Hospitalization)
  Sender: FDA-Public Use
  Company Number: KAD201403-000380

PATIENT
  Age: 46 Year
  Sex: Male

DRUGS (8)
  1. RIBAVIRIN (RIBAVIRIN) [Suspect]
     Indication: CHRONIC HEPATITIS C
     Route: 048
     Dates: start: 20131001
  2. BMS 914143 (PEGINTERFERON LAMBDA) [Suspect]
     Indication: CHRONIC HEPATITIS C
     Route: 058
     Dates: start: 20131001
  3. PEGINTERFERON ALFA-2A (PEGINTERFERON ALFA-2A) [Suspect]
     Indication: CHRONIC HEPATITIS C
     Route: 058
     Dates: start: 20131001
  4. TELAPREVIR (TELAPREVIR) [Suspect]
     Indication: CHRONIC HEPATITIS C
     Route: 048
     Dates: start: 20131001, end: 20131223
  5. PROPAFENONE (PROPAFENONE HYDROCHLORIDE) [Concomitant]
  6. METOPROLOL TARTRATE (METOPROLOL TARTRATE_ [Concomitant]
  7. SOTALOL (SOTALOL HYDROCHLORIDE) [Concomitant]
  8. PANTOPRAZOLE [Concomitant]

REACTIONS (7)
  - Hyperthyroidism [None]
  - Myalgia [None]
  - Pruritus [None]
  - Dry skin [None]
  - Rash [None]
  - Asthenia [None]
  - Tachycardia [None]
